FAERS Safety Report 26163600 (Version 1)
Quarter: 2025Q4

REPORT INFORMATION
  Report Type: Spontaneous
  Country: US (occurrence: US)
  Receive Date: 20251216
  Receipt Date: 20251216
  Transmission Date: 20260117
  Serious: Yes (Hospitalization)
  Sender: US WORLDMEDS
  Company Number: US-USWM-UWM202512-000194

PATIENT
  Sex: Male

DRUGS (1)
  1. DANTROLENE [Suspect]
     Active Substance: DANTROLENE
     Indication: Product used for unknown indication
     Dosage: NOT PROVIDED

REACTIONS (1)
  - Eosinophilic pleural effusion [Recovered/Resolved]
